FAERS Safety Report 20461148 (Version 2)
Quarter: 2022Q1

REPORT INFORMATION
  Report Type: Spontaneous
  Country: CA (occurrence: CA)
  Receive Date: 20220211
  Receipt Date: 20220224
  Transmission Date: 20220423
  Serious: Yes (Other)
  Sender: FDA-Public Use
  Company Number: CA-BIOGEN-2021BI01047902

PATIENT
  Age: 33 Year
  Sex: Male

DRUGS (4)
  1. TYSABRI [Suspect]
     Active Substance: NATALIZUMAB
     Indication: Multiple sclerosis
     Dosage: 61 INFUSIONS
     Route: 065
     Dates: start: 20130809, end: 20180411
  2. TYSABRI [Suspect]
     Active Substance: NATALIZUMAB
     Dosage: 11 INFUSIONS
     Route: 065
     Dates: start: 20180516, end: 20190502
  3. TYSABRI [Suspect]
     Active Substance: NATALIZUMAB
     Dosage: 20 INFUSIONS
     Route: 065
     Dates: start: 20190606
  4. TYSABRI [Suspect]
     Active Substance: NATALIZUMAB
     Route: 065
     Dates: end: 20210804

REACTIONS (4)
  - Progressive multifocal leukoencephalopathy [Recovered/Resolved]
  - Immune reconstitution inflammatory syndrome [Not Recovered/Not Resolved]
  - Prescribed underdose [Recovered/Resolved]
  - Multiple sclerosis [Unknown]

NARRATIVE: CASE EVENT DATE: 20180516
